FAERS Safety Report 10073895 (Version 1)
Quarter: 2014Q2

REPORT INFORMATION
  Report Type: Spontaneous
  Country: US (occurrence: US)
  Receive Date: 20140412
  Receipt Date: 20140412
  Transmission Date: 20141212
  Serious: No
  Sender: FDA-Public Use
  Company Number: US-009507513-1404USA005591

PATIENT
  Age: 19 Year
  Sex: Female

DRUGS (1)
  1. NEXPLANON [Suspect]
     Indication: CONTRACEPTION
     Dosage: 1 ROD FOR 3 YEARS
     Route: 059
     Dates: start: 20140318

REACTIONS (2)
  - Menorrhagia [Unknown]
  - Hypomenorrhoea [Unknown]
